FAERS Safety Report 24690222 (Version 1)
Quarter: 2024Q4

REPORT INFORMATION
  Report Type: Spontaneous
  Country: US (occurrence: US)
  Receive Date: 20241203
  Receipt Date: 20241203
  Transmission Date: 20250115
  Serious: No
  Sender: SANOFI AVENTIS
  Company Number: US-SA-2024SA352988

PATIENT
  Age: 79 Year

DRUGS (1)
  1. MULTAQ [Suspect]
     Active Substance: DRONEDARONE
     Indication: Atrial fibrillation
     Dosage: UNK UNK, BID (400MG ( 1/2 TABLET) ) 2 TIMES EVERY DAY
     Route: 048

REACTIONS (1)
  - Off label use [Unknown]
